FAERS Safety Report 21835328 (Version 5)
Quarter: 2023Q1

REPORT INFORMATION
  Report Type: Report from Study
  Country: EG (occurrence: EG)
  Receive Date: 20230109
  Receipt Date: 20230218
  Transmission Date: 20230418
  Serious: Yes (Other)
  Sender: FDA-Public Use
  Company Number: EG-002147023-NVSC2021EG090650

PATIENT
  Age: 43 Year
  Sex: Female

DRUGS (13)
  1. COSENTYX [Suspect]
     Active Substance: SECUKINUMAB
     Indication: Psoriatic arthropathy
     Dosage: 1 DOSAGE FORM, QMO (150MG PREFILLED PEN) (SERIAL NUMBER: 10805102133207)
     Route: 058
     Dates: start: 2018
  2. COSENTYX [Suspect]
     Active Substance: SECUKINUMAB
     Indication: Rheumatic disorder
     Dosage: 1 DOSAGE FORM, QMO (1 PEN)
     Route: 065
     Dates: start: 202004, end: 202010
  3. COSENTYX [Suspect]
     Active Substance: SECUKINUMAB
     Indication: Psoriasis
     Dosage: 1 DF, QMO (150 MG, PEN)
     Route: 065
     Dates: start: 20210418
  4. COSENTYX [Suspect]
     Active Substance: SECUKINUMAB
     Dosage: 1 DOSAGE FORM, QW (THEN 1 PREFILLED PEN EVERY MONTH) (MORE THAN 4 OR 5 YEARS AGO)
     Route: 058
  5. LEVOTHYROXINE [Concomitant]
     Active Substance: LEVOTHYROXINE
     Indication: Product used for unknown indication
     Dosage: 3 DF, QD
     Route: 065
  6. LEFLUNOMIDE [Concomitant]
     Active Substance: LEFLUNOMIDE
     Indication: Product used for unknown indication
     Dosage: UNK, BID
     Route: 065
  7. CALCID [Concomitant]
     Indication: Product used for unknown indication
     Dosage: UNK, QD
     Route: 065
  8. MYOFEN [Concomitant]
     Indication: Product used for unknown indication
     Dosage: UNK, QD
     Route: 065
  9. METHOTREXATE [Concomitant]
     Active Substance: METHOTREXATE
     Indication: Rheumatic disorder
     Dosage: 1 DOSAGE FORM, QD (PRESCRIBED 5 TABS)
     Route: 065
     Dates: start: 2020
  10. METHOTREXATE [Concomitant]
     Active Substance: METHOTREXATE
     Dosage: 5 DOSAGE FORM, QW
     Route: 065
     Dates: start: 2020
  11. FOLIC ACID [Concomitant]
     Active Substance: FOLIC ACID
     Indication: Rheumatic disorder
     Dosage: 1 DOSAGE FORM, QD (AFTER METHOTREXATE DOSE ONCE PER WEEK)
     Route: 065
     Dates: start: 2020
  12. CELECOXIB [Concomitant]
     Active Substance: CELECOXIB
     Indication: Rheumatic disorder
     Dosage: UNK, QD (AT NIGHT)
     Route: 065
     Dates: start: 202301
  13. DICLOFENAC SODIUM [Concomitant]
     Active Substance: DICLOFENAC SODIUM
     Indication: Analgesic therapy
     Dosage: UNK, PRN (WHEN NEEDED) (ONE OR TWO TABS DAILY)
     Route: 065
     Dates: start: 2017

REACTIONS (16)
  - Psoriatic arthropathy [Not Recovered/Not Resolved]
  - Movement disorder [Not Recovered/Not Resolved]
  - Asphyxia [Recovered/Resolved]
  - Quality of life decreased [Not Recovered/Not Resolved]
  - Oedema [Recovered/Resolved]
  - Face oedema [Recovered/Resolved]
  - Dizziness [Not Recovered/Not Resolved]
  - Hypotension [Not Recovered/Not Resolved]
  - Dyspnoea [Recovered/Resolved]
  - Liver function test increased [Unknown]
  - Mean cell haemoglobin concentration decreased [Unknown]
  - Hypersensitivity [Not Recovered/Not Resolved]
  - Product use issue [Not Recovered/Not Resolved]
  - Product use in unapproved indication [Unknown]
  - Drug ineffective [Not Recovered/Not Resolved]
  - Product dose omission issue [Not Recovered/Not Resolved]

NARRATIVE: CASE EVENT DATE: 20200401
